FAERS Safety Report 6142581-6 (Version None)
Quarter: 2009Q2

REPORT INFORMATION
  Report Type: 
  Country: None (occurrence: None)
  Receive Date: 20090403
  Receipt Date: 20090324
  Transmission Date: 20091009
  Serious: Yes (Other)
  Sender: FDA-Public Use
  Company Number: US-BAYER-200910989BCC

PATIENT
  Sex: Male

DRUGS (2)
  1. PHILLIPS CHERRY MILK OF MAGNESIA [Suspect]
     Indication: CONSTIPATION
     Dosage: BOTTLE SIZE: 26 OUNCES
     Dates: start: 20050101
  2. METAMUCIL [Concomitant]

REACTIONS (1)
  - RENAL DISORDER [None]
